FAERS Safety Report 12127882 (Version 1)
Quarter: 2016Q1

REPORT INFORMATION
  Report Type: Spontaneous
  Country: FR (occurrence: FR)
  Receive Date: 20160229
  Receipt Date: 20160229
  Transmission Date: 20160526
  Serious: Yes (Hospitalization)
  Sender: FDA-Public Use
  Company Number: FR-009507513-1602FRA011190

PATIENT
  Sex: Female

DRUGS (4)
  1. ORGALUTRAN [Suspect]
     Active Substance: GANIRELIX ACETATE
     Dosage: 1 DF, QD
     Route: 058
     Dates: start: 20150210, end: 20150213
  2. GONAL-F [Suspect]
     Active Substance: FOLLITROPIN
     Dosage: 100 IU, QD
     Route: 058
     Dates: start: 20150126, end: 20150209
  3. GONAL-F [Suspect]
     Active Substance: FOLLITROPIN
     Dosage: 87.5 IU, QD
     Route: 058
     Dates: start: 20150210, end: 20150213
  4. CHORIONIC GONADOTROPIN [Suspect]
     Active Substance: CHORIOGONADOTROPIN ALFA
     Dosage: 2 DF, SINGLE INTAKE
     Route: 030
     Dates: start: 20150214

REACTIONS (2)
  - Ovarian hyperstimulation syndrome [Recovered/Resolved]
  - Ascites [Recovered/Resolved]
